FAERS Safety Report 7435459-9 (Version None)
Quarter: 2011Q2

REPORT INFORMATION
  Report Type: 
  Country: None (occurrence: None)
  Receive Date: 20110415
  Receipt Date: 20110404
  Transmission Date: 20111010
  Serious: Yes (Life-Threatening, Hospitalization)
  Sender: FDA-Public Use
  Company Number: 11-206

PATIENT
  Age: 68 Year
  Sex: Male

DRUGS (1)
  1. IBUPROFEN [Suspect]
     Indication: OSTEOARTHRITIS
     Dosage: 400 MG EVERY 3 DAYS ORAL
     Route: 048
     Dates: start: 20090527, end: 20090914

REACTIONS (2)
  - FALL [None]
  - ISCHAEMIC STROKE [None]
